FAERS Safety Report 5792733-X (Version None)
Quarter: 2008Q2

REPORT INFORMATION
  Report Type: 
  Country: None (occurrence: None)
  Receive Date: 20080625
  Receipt Date: 20080610
  Transmission Date: 20081010
  Serious: Yes (Hospitalization)
  Sender: FDA-Public Use
  Company Number: 2008AL005222

PATIENT
  Sex: Female

DRUGS (8)
  1. DIGOXIN [Suspect]
     Indication: ATRIAL FIBRILLATION
     Dosage: 025MG DAILY PO
     Route: 048
     Dates: start: 20000601
  2. WARFARIN SODIUM [Concomitant]
  3. LISINOPRIL [Concomitant]
  4. SOTALOL HCL [Concomitant]
  5. FUROSEMIDE [Concomitant]
  6. METFORMIN HCL [Concomitant]
  7. LEVOTHYROXINE SODIUM [Concomitant]
  8. INSULIN [Concomitant]

REACTIONS (6)
  - ALOPECIA [None]
  - ASTHENIA [None]
  - HEADACHE [None]
  - HEART RATE INCREASED [None]
  - PAIN IN JAW [None]
  - PALPITATIONS [None]
